FAERS Safety Report 20127797 (Version 1)
Quarter: 2021Q4

REPORT INFORMATION
  Report Type: Spontaneous
  Country: US (occurrence: US)
  Receive Date: 20211129
  Receipt Date: 20211129
  Transmission Date: 20220303
  Serious: Yes (Death, Hospitalization)
  Sender: FDA-Public Use
  Company Number: US-ELI_LILLY_AND_COMPANY-US202111011394

PATIENT
  Age: 61 Year
  Sex: Male

DRUGS (2)
  1. RAMUCIRUMAB [Suspect]
     Active Substance: RAMUCIRUMAB
     Indication: Product used for unknown indication
     Dosage: UNK UNK, UNKNOWN
     Route: 065
  2. LONSURF [Suspect]
     Active Substance: TIPIRACIL HYDROCHLORIDE\TRIFLURIDINE
     Indication: Product used for unknown indication
     Dosage: UNK UNK, UNKNOWN
     Route: 048

REACTIONS (7)
  - Haematochezia [Fatal]
  - Gastrointestinal disorder [Fatal]
  - Nervous system disorder [Fatal]
  - Large intestinal haemorrhage [Fatal]
  - Rectal haemorrhage [Fatal]
  - Cerebrovascular accident [Fatal]
  - Malignant neoplasm progression [Fatal]
